FAERS Safety Report 18055072 (Version 16)
Quarter: 2021Q3

REPORT INFORMATION
  Report Type: Report from Study
  Country: GB (occurrence: GB)
  Receive Date: 20200722
  Receipt Date: 20210917
  Transmission Date: 20211014
  Serious: Yes (Other)
  Sender: FDA-Public Use
  Company Number: GB-PFIZER INC-2020274630

PATIENT
  Age: 55 Year
  Sex: Female
  Weight: 63.5 kg

DRUGS (42)
  1. CARBOPLATIN. [Suspect]
     Active Substance: CARBOPLATIN
     Indication: NON-SMALL CELL LUNG CANCER
  2. ATEZOLIZUMAB. [Suspect]
     Active Substance: ATEZOLIZUMAB
     Dosage: 1200 MG, EVERY 3 WEEKS
     Route: 041
     Dates: start: 20200415
  3. DEXAMETHASONE. [Concomitant]
     Active Substance: DEXAMETHASONE
     Indication: NAUSEA
     Dosage: 20 MG
     Dates: start: 20200212, end: 20200212
  4. CHLORPHENAMINE [Concomitant]
     Active Substance: CHLORPHENIRAMINE MALEATE
     Dosage: 10 MG
     Dates: start: 20200304, end: 20200304
  5. LOPERAMIDE [Concomitant]
     Active Substance: LOPERAMIDE
     Indication: DIARRHOEA
  6. MORPHINE [Concomitant]
     Active Substance: MORPHINE
     Indication: PAIN IN EXTREMITY
  7. ETOPOSIDE. [Suspect]
     Active Substance: ETOPOSIDE
     Indication: NEOPLASM MALIGNANT
     Dosage: UNK
     Route: 065
  8. ATEZOLIZUMAB. [Suspect]
     Active Substance: ATEZOLIZUMAB
     Indication: NON-SMALL CELL LUNG CANCER
     Dosage: 1200 MG, EVERY 3 WEEKS
     Route: 041
     Dates: start: 20200212, end: 20200415
  9. RANITIDINE. [Concomitant]
     Active Substance: RANITIDINE
     Dosage: 50 MG
     Dates: start: 20200304, end: 20200304
  10. DEXAMETHASONE. [Concomitant]
     Active Substance: DEXAMETHASONE
     Dosage: 20 MG
     Dates: start: 20200304, end: 20200304
  11. PREDNISOLONE. [Concomitant]
     Active Substance: PREDNISOLONE
     Indication: HEPATIC FAILURE
     Dosage: 50 MG
     Dates: start: 20200325, end: 20200325
  12. CARBOPLATIN. [Suspect]
     Active Substance: CARBOPLATIN
     Indication: NEOPLASM MALIGNANT
     Dosage: UNK
     Route: 065
  13. LOPERAMIDE [Concomitant]
     Active Substance: LOPERAMIDE
     Indication: DIARRHOEA
     Dosage: UNK
     Dates: start: 20200601
  14. CYCLIZINE [Concomitant]
     Active Substance: CYCLIZINE
     Indication: NAUSEA
     Dosage: 1 DF, AS NEEDED
     Dates: start: 20200811
  15. ETOPOSIDE. [Suspect]
     Active Substance: ETOPOSIDE
     Indication: NON-SMALL CELL LUNG CANCER
  16. ATEZOLIZUMAB. [Suspect]
     Active Substance: ATEZOLIZUMAB
     Dosage: 1200 MG, EVERY 3 WEEKS
     Route: 041
     Dates: start: 20200304
  17. ATEZOLIZUMAB. [Suspect]
     Active Substance: ATEZOLIZUMAB
     Dosage: 1200 MG, EVERY 3 WEEKS
     Route: 041
     Dates: start: 20200325
  18. ATEZOLIZUMAB. [Suspect]
     Active Substance: ATEZOLIZUMAB
     Dosage: 1200 MG, EVERY 3 WEEKS
     Route: 041
     Dates: start: 20200916
  19. ONDANSETRON [Concomitant]
     Active Substance: ONDANSETRON
     Dosage: 8 MG (INJECTION)
     Dates: start: 20200212, end: 20200212
  20. RANITIDINE. [Concomitant]
     Active Substance: RANITIDINE
     Dosage: 50 MG
     Dates: start: 20200325, end: 20200325
  21. DENOSUMAB [Concomitant]
     Active Substance: DENOSUMAB
     Indication: BONE PAIN
     Dosage: UNK
     Dates: start: 20200803
  22. BEVACIZUMAB. [Suspect]
     Active Substance: BEVACIZUMAB
     Indication: NEOPLASM MALIGNANT
     Dosage: UNK
     Route: 041
  23. ATEZOLIZUMAB. [Suspect]
     Active Substance: ATEZOLIZUMAB
     Dosage: 1200 MG, EVERY 3 WEEKS
     Route: 041
     Dates: start: 20200513, end: 20200715
  24. ATEZOLIZUMAB. [Suspect]
     Active Substance: ATEZOLIZUMAB
     Dosage: 1200 MG, EVERY 3 WEEKS
     Route: 041
     Dates: start: 20200603
  25. ATEZOLIZUMAB. [Suspect]
     Active Substance: ATEZOLIZUMAB
     Dosage: 1200 MG, EVERY 3 WEEKS
     Route: 041
     Dates: start: 20200624
  26. ATEZOLIZUMAB. [Suspect]
     Active Substance: ATEZOLIZUMAB
     Dosage: 1200 MG, EVERY 3 WEEKS
     Route: 041
     Dates: start: 20200715
  27. DEXAMETHASONE. [Concomitant]
     Active Substance: DEXAMETHASONE
     Dosage: 20 MG
     Dates: start: 20200325, end: 20200325
  28. DEXAMETHASONE. [Concomitant]
     Active Substance: DEXAMETHASONE
     Dosage: UNK, 1X/DAY
     Dates: start: 20200504, end: 20200504
  29. PACLITAXEL. [Suspect]
     Active Substance: PACLITAXEL
     Indication: NON-SMALL CELL LUNG CANCER
  30. ATEZOLIZUMAB. [Suspect]
     Active Substance: ATEZOLIZUMAB
     Indication: NEOPLASM MALIGNANT
     Dosage: 1200 MG, EVERY 3 WEEKS (LAST DOSE PRIOR TO AE ONSET 15APR2020)
     Route: 041
     Dates: start: 20200204
  31. PROLIA [Suspect]
     Active Substance: DENOSUMAB
     Indication: BONE PAIN
     Dosage: UNK
     Dates: start: 20200803
  32. CHLORPHENAMINE [Concomitant]
     Active Substance: CHLORPHENIRAMINE MALEATE
     Dosage: 10 MG
     Dates: start: 20200325, end: 20200325
  33. ATEZOLIZUMAB. [Suspect]
     Active Substance: ATEZOLIZUMAB
     Dosage: 1200 MG, EVERY 3 WEEKS
     Route: 041
     Dates: start: 20200805
  34. ATEZOLIZUMAB. [Suspect]
     Active Substance: ATEZOLIZUMAB
     Dosage: 1200 MG, EVERY 3 WEEKS
     Route: 041
     Dates: start: 20200826
  35. PREDNISOLONE. [Concomitant]
     Active Substance: PREDNISOLONE
     Dosage: UNK, 1X/DAY
     Dates: start: 20200921, end: 20200925
  36. PREDNISOLONE. [Concomitant]
     Active Substance: PREDNISOLONE
     Dosage: UNK 1X/DAY
     Dates: start: 20200926, end: 20201005
  37. MORPHINE [Concomitant]
     Active Substance: MORPHINE
     Indication: PAIN IN EXTREMITY
     Dosage: UNK
     Dates: start: 20200829
  38. MORPHINE [Concomitant]
     Active Substance: MORPHINE
     Indication: PAIN IN EXTREMITY
  39. PACLITAXEL. [Suspect]
     Active Substance: PACLITAXEL
     Indication: NEOPLASM MALIGNANT
     Dosage: 50 MG
     Route: 065
     Dates: start: 20200325, end: 20200325
  40. ATEZOLIZUMAB. [Suspect]
     Active Substance: ATEZOLIZUMAB
     Dosage: 1200 MG, EVERY 3 WEEKS
     Route: 041
     Dates: start: 20200312
  41. FAMOTIDINE. [Suspect]
     Active Substance: FAMOTIDINE
     Dosage: 40 MG
     Dates: start: 20200212, end: 20200212
  42. FILGRASTIM [Suspect]
     Active Substance: FILGRASTIM
     Indication: WHITE BLOOD CELL COUNT DECREASED
     Dosage: UNK
     Dates: start: 20200512, end: 20200515

REACTIONS (22)
  - Haemoglobin decreased [Recovered/Resolved]
  - Ear pain [Not Recovered/Not Resolved]
  - Haemoglobin decreased [Recovered/Resolved]
  - Haemoglobin decreased [Not Recovered/Not Resolved]
  - Ear pain [Not Recovered/Not Resolved]
  - Blood magnesium decreased [Recovering/Resolving]
  - Decreased appetite [Not Recovered/Not Resolved]
  - Mucosal inflammation [Not Recovered/Not Resolved]
  - Vomiting [Recovering/Resolving]
  - Anaemia [Not Recovered/Not Resolved]
  - Autoimmune haemolytic anaemia [Recovering/Resolving]
  - Diarrhoea [Unknown]
  - Platelet count decreased [Unknown]
  - Fatigue [Not Recovered/Not Resolved]
  - Ear pain [Not Recovered/Not Resolved]
  - Mucosal inflammation [Not Recovered/Not Resolved]
  - Nausea [Not Recovered/Not Resolved]
  - Decreased appetite [Not Recovered/Not Resolved]
  - Weight decreased [Recovered/Resolved]
  - White blood cell count decreased [Recovered/Resolved]
  - White blood cell count decreased [Recovered/Resolved]
  - Fatigue [Not Recovered/Not Resolved]

NARRATIVE: CASE EVENT DATE: 20200213
